FAERS Safety Report 8491768-6 (Version None)
Quarter: 2012Q3

REPORT INFORMATION
  Report Type: 
  Country: None (occurrence: None)
  Receive Date: 20120706
  Receipt Date: 20120626
  Transmission Date: 20120928
  Serious: Yes (Other)
  Sender: FDA-Public Use
  Company Number: JP-FRI-1000029225

PATIENT
  Sex: Female
  Weight: 45 kg

DRUGS (8)
  1. FLUVOXAMINE MALEATE [Concomitant]
     Indication: DEPRESSION
     Dosage: 50 MG
     Route: 048
     Dates: start: 20120116, end: 20120326
  2. DIAZEPAM [Concomitant]
     Indication: ANXIETY
     Dosage: 15 MG
     Route: 048
     Dates: start: 20111116
  3. LEXAPRO [Suspect]
     Indication: DEPRESSION
     Dosage: 10 MG
     Route: 048
     Dates: start: 20120216, end: 20120229
  4. BROTIZOLAM [Concomitant]
     Indication: INSOMNIA
     Dosage: 0.25 MG
     Route: 048
     Dates: start: 20091116
  5. ESTAZOLAM [Concomitant]
     Indication: INSOMNIA
     Dosage: 2 MG
     Route: 048
     Dates: start: 20091022
  6. LEXAPRO [Suspect]
     Dosage: 20 MG
     Route: 048
     Dates: start: 20120301, end: 20120308
  7. RILYFTER [Concomitant]
     Indication: INSOMNIA
     Dosage: 10 MG
     Route: 048
     Dates: start: 20110714, end: 20120315
  8. EVAMYL [Concomitant]
     Indication: INSOMNIA
     Dosage: 2 MG
     Route: 048
     Dates: start: 20110613

REACTIONS (6)
  - TREMOR [None]
  - DECREASED APPETITE [None]
  - NAUSEA [None]
  - CONVULSION [None]
  - VOMITING [None]
  - FACIAL SPASM [None]
